FAERS Safety Report 4421301-7 (Version None)
Quarter: 2004Q3

REPORT INFORMATION
  Report Type: 
  Country: None (occurrence: None)
  Receive Date: 20040804
  Receipt Date: 20040719
  Transmission Date: 20050211
  Serious: Yes (Hospitalization)
  Sender: FDA-Public Use
  Company Number: 2004S1000480

PATIENT
  Age: 48 Year
  Sex: Male

DRUGS (2)
  1. DOXORUBICIN HCL [Suspect]
     Indication: HEPATIC NEOPLASM MALIGNANT
     Dosage: 60 MG/M^2; EVERY THREE WEEKS  IV
     Route: 042
     Dates: start: 20040320, end: 20040618
  2. PAROXETINE HCL [Suspect]
     Indication: DEPRESSION
     Dosage: ORAL
     Route: 048
     Dates: start: 20031001

REACTIONS (3)
  - FATIGUE [None]
  - HEPATITIS B [None]
  - HEPATITIS CHRONIC ACTIVE [None]
